FAERS Safety Report 8476458-8 (Version None)
Quarter: 2012Q2

REPORT INFORMATION
  Report Type: 
  Country: None (occurrence: None)
  Receive Date: 20120615
  Receipt Date: 20120605
  Transmission Date: 20120825
  Serious: Yes (Hospitalization)
  Sender: FDA-Public Use
  Company Number: 2012SP031130

PATIENT
  Age: 63 Year
  Sex: Male
  Weight: 100.6985 kg

DRUGS (7)
  1. CODEINE SULFATE [Concomitant]
  2. PEGINTERFERON ALFA-2B [Suspect]
     Indication: HEPATITIS C
     Dosage: 150 MCG; SC,  600 MG; PO
     Route: 058
  3. GABAPENTIN [Concomitant]
  4. ATENOLOL [Concomitant]
  5. TAMSULOSIN HCL [Concomitant]
  6. BETAXOLOL HCL [Concomitant]
  7. PROPAFENONE HCL [Concomitant]

REACTIONS (2)
  - ATRIAL FIBRILLATION [None]
  - BUNDLE BRANCH BLOCK RIGHT [None]
